FAERS Safety Report 8874688 (Version 1)
Quarter: 2012Q4

REPORT INFORMATION
  Report Type: 
  Country: US (occurrence: US)
  Receive Date: 20121031
  Receipt Date: 20121031
  Transmission Date: 20130627
  Serious: No
  Sender: FDA-Public Use
  Company Number: US-ASTRAZENECA-2012SE79760

PATIENT
  Age: 78 Year
  Sex: Male

DRUGS (8)
  1. SYMBICORT PMDI [Suspect]
     Dosage: 160 MCG, UNKNOWN
     Route: 055
  2. LISINOPRIL [Suspect]
     Route: 048
  3. ALBUTEROL [Concomitant]
  4. GLYBURIDE [Concomitant]
  5. ZOLPIDEM [Concomitant]
  6. B2 [Concomitant]
  7. LORAZEPAM [Concomitant]
  8. BICALUTMIDE [Concomitant]

REACTIONS (3)
  - Hyperhidrosis [Unknown]
  - Dizziness [Unknown]
  - Dizziness [Unknown]
